FAERS Safety Report 13010142 (Version 1)
Quarter: 2016Q4

REPORT INFORMATION
  Report Type: Spontaneous
  Country: US (occurrence: US)
  Receive Date: 20161208
  Receipt Date: 20161208
  Transmission Date: 20170207
  Serious: No
  Sender: FDA-Public Use
  Company Number: GXBR2016US002064

PATIENT
  Age: 57 Year
  Sex: Male
  Weight: 71.2 kg

DRUGS (1)
  1. CLOTRIMAZOLE AND BETAMETHASONE [Suspect]
     Active Substance: BETAMETHASONE\CLOTRIMAZOLE
     Indication: ECZEMA
     Dosage: UNK DF, ONCE/SINGLE
     Route: 061
     Dates: start: 20160607

REACTIONS (1)
  - Application site pruritus [Recovered/Resolved]

NARRATIVE: CASE EVENT DATE: 20160607
